FAERS Safety Report 16907786 (Version 1)
Quarter: 2019Q4

REPORT INFORMATION
  Report Type: Spontaneous
  Country: US (occurrence: US)
  Receive Date: 20191011
  Receipt Date: 20191011
  Transmission Date: 20200122
  Serious: Yes (Other)
  Sender: FDA-Public Use
  Company Number: US-AKORN PHARMACEUTICALS-2019AKN02119

PATIENT
  Age: 29 Year
  Sex: Male
  Weight: 107.94 kg

DRUGS (6)
  1. MYORISAN [Suspect]
     Active Substance: ISOTRETINOIN
     Indication: ACNE
     Dosage: 40 MG, 1X/DAY
     Route: 048
     Dates: start: 20190829, end: 20190907
  2. TUMERIC [Concomitant]
     Active Substance: HERBALS\TURMERIC
  3. NEOKE BCAA4 [Concomitant]
  4. 5-HTP [Concomitant]
  5. DAPSONE. [Concomitant]
     Active Substance: DAPSONE
  6. FISH OIL [Concomitant]
     Active Substance: FISH OIL

REACTIONS (3)
  - Off label use [Recovered/Resolved]
  - Suicidal ideation [Recovered/Resolved]
  - Depression [Recovered/Resolved]

NARRATIVE: CASE EVENT DATE: 2019
